FAERS Safety Report 12494146 (Version 1)
Quarter: 2016Q2

REPORT INFORMATION
  Report Type: Report from Study
  Country: CO (occurrence: CO)
  Receive Date: 20160623
  Receipt Date: 20160623
  Transmission Date: 20160815
  Serious: No
  Sender: FDA-Public Use
  Company Number: PHHY2016CO086638

PATIENT
  Age: 50 Year
  Sex: Female
  Weight: 70 kg

DRUGS (7)
  1. PREDNISOLONE. [Concomitant]
     Active Substance: PREDNISOLONE
     Indication: PRODUCT USED FOR UNKNOWN INDICATION
     Dosage: UNK
     Route: 065
  2. ACETAMINOPHEN. [Concomitant]
     Active Substance: ACETAMINOPHEN
     Indication: PRODUCT USED FOR UNKNOWN INDICATION
     Route: 065
  3. LEVOTHYROXINE. [Concomitant]
     Active Substance: LEVOTHYROXINE
     Indication: PRODUCT USED FOR UNKNOWN INDICATION
     Route: 065
  4. FOLIC ACID. [Concomitant]
     Active Substance: FOLIC ACID
     Indication: PRODUCT USED FOR UNKNOWN INDICATION
     Route: 065
  5. TASIGNA [Suspect]
     Active Substance: NILOTINIB
     Indication: CHRONIC MYELOID LEUKAEMIA
     Dosage: 2 DF OF 150 MG, Q12H
     Route: 048
     Dates: start: 20130916
  6. TASIGNA [Suspect]
     Active Substance: NILOTINIB
     Dosage: 1 DF OF 150 MG, Q12H
     Route: 048
  7. METHOTREXATE [Concomitant]
     Active Substance: METHOTREXATE
     Indication: PRODUCT USED FOR UNKNOWN INDICATION
     Route: 065

REACTIONS (3)
  - Incorrect dose administered [Unknown]
  - Urticaria [Unknown]
  - Pruritus [Unknown]

NARRATIVE: CASE EVENT DATE: 20160618
